FAERS Safety Report 7280544-8 (Version None)
Quarter: 2011Q1

REPORT INFORMATION
  Report Type: 
  Country: None (occurrence: None)
  Receive Date: 20110208
  Receipt Date: 20101217
  Transmission Date: 20110831
  Serious: Yes (Other)
  Sender: FDA-Public Use
  Company Number: US-BAYER-201022424NA

PATIENT
  Sex: Female

DRUGS (5)
  1. DICLOFENAC SODIUM [Concomitant]
     Dosage: UNK
     Dates: start: 20091209
  2. SERTRALINE HYDROCHLORIDE [Concomitant]
  3. HYDROCODONE BITARTRATE [Concomitant]
  4. YASMIN [Suspect]
     Indication: PRODUCT USED FOR UNKNOWN INDICATION
     Route: 048
     Dates: start: 20041001, end: 20080701
  5. LOVENOX [Concomitant]

REACTIONS (4)
  - OEDEMA PERIPHERAL [None]
  - PAIN IN EXTREMITY [None]
  - THROMBOSIS [None]
  - DEEP VEIN THROMBOSIS [None]
